FAERS Safety Report 19582358 (Version 1)
Quarter: 2021Q3

REPORT INFORMATION
  Report Type: Spontaneous
  Country: US (occurrence: US)
  Receive Date: 20210720
  Receipt Date: 20210720
  Transmission Date: 20211014
  Serious: No
  Sender: FDA-Public Use
  Company Number: None

PATIENT
  Age: 9 Year
  Sex: Female
  Weight: 24.75 kg

DRUGS (1)
  1. KEPPRA [Suspect]
     Active Substance: LEVETIRACETAM
     Indication: JEAVONS SYNDROME
     Route: 048

REACTIONS (2)
  - Self-injurious ideation [None]
  - Aggression [None]

NARRATIVE: CASE EVENT DATE: 20200718
